FAERS Safety Report 7861691-6 (Version None)
Quarter: 2011Q4

REPORT INFORMATION
  Report Type: 
  Country: None (occurrence: None)
  Receive Date: 20111027
  Receipt Date: 20111024
  Transmission Date: 20120403
  Serious: Yes (Other)
  Sender: FDA-Public Use
  Company Number: US-B.I. PHARMACEUTICALS,INC./RIDGEFIELD-2011-BP-23478BP

PATIENT
  Age: 69 Year
  Sex: Female
  Weight: 47.7 kg

DRUGS (2)
  1. TENORETIC 100 [Concomitant]
  2. PRADAXA [Suspect]
     Indication: ATRIAL FIBRILLATION
     Dosage: 300 MG
     Dates: start: 20110606, end: 20110913

REACTIONS (1)
  - HAEMOGLOBIN DECREASED [None]
